FAERS Safety Report 9509945 (Version 2)
Quarter: 2013Q3

REPORT INFORMATION
  Report Type: Spontaneous
  Country: US (occurrence: US)
  Receive Date: 20130909
  Receipt Date: 20130909
  Transmission Date: 20140515
  Serious: No
  Sender: FDA-Public Use
  Company Number: US-BRISTOL-MYERS SQUIBB COMPANY-18793422

PATIENT
  Age: 51 Year
  Sex: Male
  Weight: 88.43 kg

DRUGS (1)
  1. ABILIFY TABS 5 MG [Suspect]
     Indication: DEPRESSION
     Dosage: PRESCRIPTION#: 1102021:ONG
     Route: 048

REACTIONS (2)
  - Wrong technique in drug usage process [None]
  - Drug ineffective [None]
